FAERS Safety Report 5972891-4 (Version None)
Quarter: 2008Q4

REPORT INFORMATION
  Report Type: 
  Country: None (occurrence: None)
  Receive Date: 20081201
  Receipt Date: 20081119
  Transmission Date: 20090506
  Serious: Yes (Other)
  Sender: FDA-Public Use
  Company Number: PHHY2008NO15496

PATIENT
  Sex: Male

DRUGS (5)
  1. RITALIN [Suspect]
     Indication: ATTENTION DEFICIT/HYPERACTIVITY DISORDER
     Dosage: 20 MG
     Route: 048
  2. RITALIN [Suspect]
     Dosage: 30 MG
     Route: 048
  3. RITALIN [Suspect]
     Dosage: 50 MG
     Route: 048
  4. CONCERTA [Concomitant]
  5. STRATTERA [Concomitant]

REACTIONS (3)
  - HEADACHE [None]
  - NECK PAIN [None]
  - TIC [None]
